FAERS Safety Report 22049388 (Version 2)
Quarter: 2023Q1

REPORT INFORMATION
  Report Type: Spontaneous
  Country: US (occurrence: US)
  Receive Date: 20230301
  Receipt Date: 20230316
  Transmission Date: 20230417
  Serious: Yes (Other)
  Sender: FDA-Public Use
  Company Number: US-TEVA-2023-US-2859577

PATIENT
  Age: 44 Year
  Sex: Female

DRUGS (6)
  1. MYCOPHENOLATE MOFETIL [Suspect]
     Active Substance: MYCOPHENOLATE MOFETIL
     Indication: Immunosuppressant drug therapy
     Route: 065
  2. PREDNISONE [Suspect]
     Active Substance: PREDNISONE
     Indication: Systemic lupus erythematosus
     Route: 065
  3. FLUOROURACIL [Suspect]
     Active Substance: FLUOROURACIL
     Indication: Epidermodysplasia verruciformis
     Dosage: INTERMITTENT SHORT COURSES
     Route: 065
  4. CYCLOSPORINE [Suspect]
     Active Substance: CYCLOSPORINE
     Indication: Immunosuppressant drug therapy
     Route: 065
  5. TAZAROTENE [Suspect]
     Active Substance: TAZAROTENE
     Indication: Epidermodysplasia verruciformis
     Dosage: NIGHTLY
     Route: 065
  6. IMIQUIMOD [Suspect]
     Active Substance: IMIQUIMOD
     Indication: Epidermodysplasia verruciformis
     Route: 065

REACTIONS (2)
  - Epidermodysplasia verruciformis [Not Recovered/Not Resolved]
  - Drug ineffective [Unknown]
